FAERS Safety Report 6443540-6 (Version None)
Quarter: 2009Q4

REPORT INFORMATION
  Report Type: 
  Country: None (occurrence: None)
  Receive Date: 20091113
  Receipt Date: 20091104
  Transmission Date: 20100525
  Serious: Yes (Hospitalization)
  Sender: FDA-Public Use
  Company Number: CIP09003139

PATIENT
  Age: 77 Year
  Sex: Male

DRUGS (4)
  1. NITROFURANTOIN [Suspect]
     Indication: PROPHYLAXIS URINARY TRACT INFECTION
     Dosage: 100 MG DAILY, ORAL; 100 MG DAILY, ORAL; 100 MG, DAILY, ORAL; 100 MG DAILY, ORAL
     Route: 048
     Dates: start: 20080901, end: 20080901
  2. NITROFURANTOIN [Suspect]
     Indication: PROPHYLAXIS URINARY TRACT INFECTION
     Dosage: 100 MG DAILY, ORAL; 100 MG DAILY, ORAL; 100 MG, DAILY, ORAL; 100 MG DAILY, ORAL
     Route: 048
     Dates: start: 20080930, end: 20081001
  3. NITROFURANTOIN [Suspect]
     Indication: PROPHYLAXIS URINARY TRACT INFECTION
     Dosage: 100 MG DAILY, ORAL; 100 MG DAILY, ORAL; 100 MG, DAILY, ORAL; 100 MG DAILY, ORAL
     Route: 048
     Dates: start: 20081013, end: 20081001
  4. NITROFURANTOIN [Suspect]
     Indication: PROPHYLAXIS URINARY TRACT INFECTION
     Dosage: 100 MG DAILY, ORAL; 100 MG DAILY, ORAL; 100 MG, DAILY, ORAL; 100 MG DAILY, ORAL
     Route: 048
     Dates: start: 20081020, end: 20081021

REACTIONS (18)
  - ABDOMINAL PAIN [None]
  - BACTERIAL DISEASE CARRIER [None]
  - BAND NEUTROPHIL COUNT INCREASED [None]
  - BAND NEUTROPHIL PERCENTAGE INCREASED [None]
  - CHILLS [None]
  - CHROMATURIA [None]
  - CULTURE URINE POSITIVE [None]
  - DEVICE RELATED INFECTION [None]
  - DIVERTICULITIS [None]
  - FATIGUE [None]
  - HYPERHIDROSIS [None]
  - MALAISE [None]
  - NAUSEA [None]
  - NITRITE URINE PRESENT [None]
  - SYSTEMIC INFLAMMATORY RESPONSE SYNDROME [None]
  - URINE LEUKOCYTE ESTERASE POSITIVE [None]
  - VOMITING [None]
  - WHITE BLOOD CELLS URINE POSITIVE [None]
